FAERS Safety Report 24991085 (Version 1)
Quarter: 2025Q1

REPORT INFORMATION
  Report Type: Spontaneous
  Country: JP (occurrence: JP)
  Receive Date: 20250220
  Receipt Date: 20250220
  Transmission Date: 20250409
  Serious: Yes (Death)
  Sender: RECORDATI
  Company Number: JP-RECORDATI RARE DISEASE INC.-2025001017

PATIENT
  Age: 7 Year
  Sex: Male

DRUGS (1)
  1. CARBAGLU [Suspect]
     Active Substance: CARGLUMIC ACID
     Indication: Product used for unknown indication

REACTIONS (1)
  - Death [Fatal]
